FAERS Safety Report 7236773-2 (Version None)
Quarter: 2011Q1

REPORT INFORMATION
  Report Type: 
  Country: None (occurrence: None)
  Receive Date: 20110120
  Receipt Date: 20110113
  Transmission Date: 20110831
  Serious: Yes (Hospitalization)
  Sender: FDA-Public Use
  Company Number: NL-MEDIMMUNE-MEDI-0012278

PATIENT
  Sex: Female
  Weight: 8 kg

DRUGS (2)
  1. SYNAGIS [Suspect]
     Route: 030
     Dates: start: 20110113, end: 20110113
  2. SYNAGIS [Suspect]
     Route: 030
     Dates: start: 20101115, end: 20101208

REACTIONS (2)
  - RESPIRATORY TRACT CONGESTION [None]
  - INFECTION [None]
